FAERS Safety Report 7272290-1 (Version None)
Quarter: 2011Q1

REPORT INFORMATION
  Report Type: 
  Country: None (occurrence: None)
  Receive Date: 20110203
  Receipt Date: 20110125
  Transmission Date: 20110831
  Serious: Yes (Other)
  Sender: FDA-Public Use
  Company Number: PHHY2010JP63282

PATIENT
  Age: 51 Year
  Sex: Male

DRUGS (1)
  1. GLEEVEC [Suspect]
     Indication: CHRONIC MYELOID LEUKAEMIA
     Dosage: 400 MG, QD
     Route: 048
     Dates: start: 20040501, end: 20041101

REACTIONS (3)
  - NATURAL KILLER CELL COUNT INCREASED [None]
  - LIVER DISORDER [None]
  - MYALGIA [None]
